FAERS Safety Report 6815258-9 (Version None)
Quarter: 2010Q3

REPORT INFORMATION
  Report Type: 
  Country: None (occurrence: None)
  Receive Date: 20100701
  Receipt Date: 20100701
  Transmission Date: 20110219
  Serious: Yes (Other)
  Sender: FDA-Public Use
  Company Number: None

PATIENT
  Age: 35 Year
  Sex: Female
  Weight: 50.8029 kg

DRUGS (1)
  1. MOVIPREP [Suspect]
     Indication: COLONOSCOPY
     Dosage: 1 LITER AT 4:00 P.M. + 10:00PM 8 OZ EVERY 15 MIN. PO
     Route: 048
     Dates: start: 20100606, end: 20100606

REACTIONS (1)
  - DIARRHOEA [None]
